FAERS Safety Report 7649089-7 (Version None)
Quarter: 2011Q3

REPORT INFORMATION
  Report Type: 
  Country: None (occurrence: None)
  Receive Date: 20110726
  Receipt Date: 20110721
  Transmission Date: 20111222
  Serious: Yes (Other)
  Sender: FDA-Public Use
  Company Number: A0905321A

PATIENT
  Sex: Female

DRUGS (1)
  1. UREA PEROXIDE [Suspect]
     Dosage: 6 DROP(S) AURAL
     Dates: start: 20110110

REACTIONS (1)
  - DEAFNESS UNILATERAL [None]
